FAERS Safety Report 8427975-8 (Version None)
Quarter: 2012Q2

REPORT INFORMATION
  Report Type: 
  Country: None (occurrence: None)
  Receive Date: 20120611
  Receipt Date: 20120530
  Transmission Date: 20120825
  Serious: Yes (Other)
  Sender: FDA-Public Use
  Company Number: JP-PFIZER INC-2012135576

PATIENT
  Age: 68 Year
  Sex: Female

DRUGS (3)
  1. CELEBREX [Suspect]
     Indication: BACK PAIN
     Dosage: 200 MG DAILY
     Route: 048
     Dates: start: 20120423
  2. CELEBREX [Suspect]
     Indication: OSTEOARTHRITIS
     Dosage: 200 MG, DAILY
     Route: 048
     Dates: start: 20120507, end: 20120508
  3. TEPRENONE [Concomitant]
     Dosage: 100 MG DAILY
     Dates: start: 20120423, end: 20120508

REACTIONS (3)
  - RASH ERYTHEMATOUS [None]
  - CONJUNCTIVAL HYPERAEMIA [None]
  - ERYTHEMA [None]
